FAERS Safety Report 9432671 (Version 3)
Quarter: 2013Q4

REPORT INFORMATION
  Report Type: Spontaneous
  Country: US (occurrence: US)
  Receive Date: 20130731
  Receipt Date: 20131003
  Transmission Date: 20140711
  Serious: No
  Sender: FDA-Public Use
  Company Number: US-PFIZER INC-2013219837

PATIENT
  Age: 61 Year
  Sex: Female
  Weight: 51.3 kg

DRUGS (2)
  1. PREMARIN [Suspect]
     Indication: HORMONE REPLACEMENT THERAPY
     Dosage: 0.625 MG DAILY
     Route: 048
  2. SYNTHROID [Concomitant]
     Indication: THYROID DISORDER
     Dosage: UNK, DAILY

REACTIONS (3)
  - Product colour issue [Unknown]
  - Mood swings [Unknown]
  - Drug ineffective [Unknown]
